FAERS Safety Report 19785538 (Version 1)
Quarter: 2021Q3

REPORT INFORMATION
  Report Type: Report from Study
  Country: CA (occurrence: CA)
  Receive Date: 20210903
  Receipt Date: 20210903
  Transmission Date: 20211014
  Serious: Yes (Other)
  Sender: FDA-Public Use
  Company Number: CA-JNJFOC-20181113208

PATIENT
  Age: 29 Year
  Sex: Female
  Weight: 61.24 kg

DRUGS (3)
  1. REMICADE [Suspect]
     Active Substance: INFLIXIMAB
     Indication: COLITIS ULCERATIVE
     Route: 042
  2. MORPHINE [Concomitant]
     Active Substance: MORPHINE
     Indication: PAIN
     Dates: start: 201904
  3. NITROUS OXIDE. [Concomitant]
     Active Substance: NITROUS OXIDE
     Indication: LABOUR PAIN

REACTIONS (2)
  - Salpingectomy [Recovered/Resolved]
  - Exposure during pregnancy [Recovered/Resolved]

NARRATIVE: CASE EVENT DATE: 2018
